FAERS Safety Report 15362035 (Version 1)
Quarter: 2018Q3

REPORT INFORMATION
  Report Type: Spontaneous
  Country: AU (occurrence: AU)
  Receive Date: 20180907
  Receipt Date: 20180907
  Transmission Date: 20181010
  Serious: Yes (Hospitalization, Other)
  Sender: FDA-Public Use
  Company Number: AU-GLAXOSMITHKLINE-AU2018GSK160695

PATIENT

DRUGS (1)
  1. TAFENOQUINE [Suspect]
     Active Substance: TAFENOQUINE
     Indication: PRODUCT USED FOR UNKNOWN INDICATION
     Dosage: UNK

REACTIONS (11)
  - Suicide attempt [Not Recovered/Not Resolved]
  - Depression [Unknown]
  - Homicidal ideation [Not Recovered/Not Resolved]
  - Disturbance in social behaviour [Unknown]
  - Physical assault [Not Recovered/Not Resolved]
  - Mental disorder [Not Recovered/Not Resolved]
  - Brain injury [Unknown]
  - Bipolar disorder [Not Recovered/Not Resolved]
  - Suicidal ideation [Not Recovered/Not Resolved]
  - Mood swings [Unknown]
  - Abulia [Unknown]
